FAERS Safety Report 13179186 (Version 1)
Quarter: 2017Q1

REPORT INFORMATION
  Report Type: Spontaneous
  Country: US (occurrence: US)
  Receive Date: 20170201
  Receipt Date: 20170201
  Transmission Date: 20170428
  Serious: Yes (Hospitalization, Disabling)
  Sender: FDA-Public Use
  Company Number: None

PATIENT
  Age: 5 Month
  Sex: Male
  Weight: 11.7 kg

DRUGS (4)
  1. TRILEPTAL [Concomitant]
     Active Substance: OXCARBAZEPINE
  2. DIAZAPAM [Concomitant]
  3. BABY TEETHING (HYLAND HOMEOPATHIC) [Suspect]
     Active Substance: HOMEOPATHICS
     Indication: TEETHING
     Route: 048
     Dates: start: 20141130, end: 20150608
  4. ZANAGRAN [Concomitant]

REACTIONS (3)
  - Withdrawal syndrome [None]
  - Urticaria [None]
  - Seizure [None]

NARRATIVE: CASE EVENT DATE: 20150320
